FAERS Safety Report 24948425 (Version 2)
Quarter: 2025Q1

REPORT INFORMATION
  Report Type: Spontaneous
  Country: GR (occurrence: GR)
  Receive Date: 20250210
  Receipt Date: 20250313
  Transmission Date: 20250408
  Serious: Yes (Hospitalization)
  Sender: TAKEDA
  Company Number: GR-BEH-2025194157

PATIENT
  Age: 24 Year
  Sex: Female

DRUGS (2)
  1. HUMAN IMMUNOGLOBULIN G [Suspect]
     Active Substance: HUMAN IMMUNOGLOBULIN G
     Indication: Platelet count decreased
  2. DUPHASTON [Concomitant]
     Active Substance: DYDROGESTERONE
     Indication: Polycystic ovaries

REACTIONS (1)
  - Gastroenteritis [Unknown]
